FAERS Safety Report 8912860 (Version 1)
Quarter: 2012Q4

REPORT INFORMATION
  Report Type: 
  Country: US (occurrence: US)
  Receive Date: 20121116
  Receipt Date: 20121116
  Transmission Date: 20130627
  Serious: Yes (Other)
  Sender: FDA-Public Use
  Company Number: US-GLAXOSMITHKLINE-A0769532A

PATIENT
  Age: 50 Year
  Sex: Female

DRUGS (9)
  1. TYKERB [Suspect]
     Indication: BRAIN CANCER METASTATIC
     Dosage: 250MG Five times per day
     Route: 048
     Dates: start: 200702
  2. XELODA [Suspect]
     Indication: BREAST CANCER
     Route: 065
  3. EFFEXOR [Concomitant]
  4. ZOFRAN [Concomitant]
  5. NEXIUM [Concomitant]
  6. LOMOTIL [Concomitant]
  7. HERCEPTIN [Concomitant]
  8. NAVELBINE [Concomitant]
  9. ERYTHROMYCIN [Concomitant]
     Route: 061

REACTIONS (11)
  - Breast cancer recurrent [Recovering/Resolving]
  - Visual acuity reduced [Recovering/Resolving]
  - Fatigue [Recovering/Resolving]
  - Pruritus [Recovering/Resolving]
  - Adverse drug reaction [Recovering/Resolving]
  - Secretion discharge [Recovering/Resolving]
  - Nausea [Recovered/Resolved]
  - Rash pruritic [Not Recovered/Not Resolved]
  - Blister [Not Recovered/Not Resolved]
  - Vomiting [Unknown]
  - Product quality issue [Unknown]
